FAERS Safety Report 22085195 (Version 1)
Quarter: 2023Q1

REPORT INFORMATION
  Report Type: Spontaneous
  Country: US (occurrence: US)
  Receive Date: 20230310
  Receipt Date: 20230310
  Transmission Date: 20230418
  Serious: Yes (Other)
  Sender: FDA-Public Use
  Company Number: US-ALLERGAN-2307587US

PATIENT
  Sex: Female

DRUGS (2)
  1. REFRESH RELIEVA PF [Suspect]
     Active Substance: CARBOXYMETHYLCELLULOSE SODIUM\GLYCERIN
     Indication: Product used for unknown indication
  2. GENTIL [Concomitant]

REACTIONS (5)
  - Cataract [Unknown]
  - Blindness [Unknown]
  - Diabetic neuropathy [Unknown]
  - Glaucoma [Unknown]
  - Eye irritation [Unknown]
